FAERS Safety Report 9191991 (Version 2)
Quarter: 2013Q2

REPORT INFORMATION
  Report Type: Spontaneous
  Country: US (occurrence: US)
  Receive Date: 20130327
  Receipt Date: 20130425
  Transmission Date: 20140414
  Serious: Yes (Other)
  Sender: FDA-Public Use
  Company Number: US-009507513-1303USA011677

PATIENT
  Age: 61 Year
  Sex: Male

DRUGS (6)
  1. REBETOL [Suspect]
     Indication: HEPATITIS C
     Dosage: LOW ACCELERATED DOSE REGIMENS  FOR 4 WEEKS,AFTER 4WEEKS 600MG,QD UPTO 1000MG.QD
  2. PEG-INTRON [Suspect]
     Dosage: 90 MICROGRAM, QW, UPTO 180 MICROGRAM QW
  3. TELAPREVIR [Suspect]
     Dosage: AFTER 4 WEEKS, 750 MG, TID
  4. CYCLOSPORINE [Concomitant]
     Dosage: 100 MG, BID,AFTER 4 WEEKS TELAPREVIR ADDED DOSE REDUCED 50MG, QD
  5. MYCOPHENOLATE MOFETIL [Concomitant]
     Dosage: 500 MG, BID
  6. TACROLIMUS [Concomitant]
     Indication: IMMUNOSUPPRESSION
     Dosage: 2 MG, BID

REACTIONS (14)
  - Pancytopenia [Recovered/Resolved]
  - Anaemia [Recovered/Resolved]
  - Pancytopenia [Unknown]
  - Anaemia [Unknown]
  - Drug intolerance [Recovered/Resolved]
  - Feeling abnormal [Recovered/Resolved]
  - Mood altered [Recovered/Resolved]
  - Fatigue [Recovered/Resolved]
  - Feeling abnormal [Recovered/Resolved]
  - Drug intolerance [Unknown]
  - Mood altered [Unknown]
  - Fatigue [Unknown]
  - Feeling abnormal [Unknown]
  - Off label use [Unknown]
